FAERS Safety Report 25261415 (Version 1)
Quarter: 2025Q2

REPORT INFORMATION
  Report Type: Spontaneous
  Country: EU (occurrence: EU)
  Receive Date: 20250501
  Receipt Date: 20250501
  Transmission Date: 20250716
  Serious: Yes (Hospitalization, Other)
  Sender: BAUSCH AND LOMB
  Company Number: DE-BAUSCHBL-2025BNL007356

PATIENT
  Age: 57 Year
  Sex: Female

DRUGS (1)
  1. PREDNISOLONE ACETATE [Suspect]
     Active Substance: PREDNISOLONE ACETATE
     Indication: Product used for unknown indication
     Route: 065

REACTIONS (2)
  - Psoriatic arthropathy [Unknown]
  - Immune system disorder [Unknown]
